FAERS Safety Report 4623874-8 (Version None)
Quarter: 2005Q1

REPORT INFORMATION
  Report Type: 
  Country: None (occurrence: None)
  Receive Date: 20050331
  Receipt Date: 20050322
  Transmission Date: 20050727
  Serious: Yes (Hospitalization)
  Sender: FDA-Public Use
  Company Number: AU-BOEHRINGER INGELHEIM PHARMACEUTICALS, INC.-2005-BP-04612AU

PATIENT
  Age: 84 Year
  Sex: Female
  Weight: 70 kg

DRUGS (9)
  1. MOBIC [Suspect]
     Route: 048
     Dates: end: 20040604
  2. PLAVIX [Suspect]
     Route: 048
     Dates: end: 20040607
  3. SORBITOL [Concomitant]
     Dates: end: 20040607
  4. MIANSERIN HYDROCHOLORIDE [Concomitant]
     Indication: DEPRESSION
     Route: 048
  5. LESCOL [Concomitant]
     Indication: METABOLIC DISORDER
     Route: 048
  6. OMEPRAZOLE [Concomitant]
     Route: 048
  7. THYROXINE SODIUM [Concomitant]
     Indication: HYPERTHYROIDISM
     Route: 048
  8. ENALAPRIL MALEATE [Concomitant]
     Indication: ESSENTIAL HYPERTENSION
     Route: 048
  9. LERCANIDIPINE HYDROCHLORIDE [Concomitant]
     Indication: ESSENTIAL HYPERTENSION
     Route: 048

REACTIONS (5)
  - ABDOMINAL PAIN UPPER [None]
  - BARRETT'S OESOPHAGUS [None]
  - GASTRITIS [None]
  - RECTAL HAEMORRHAGE [None]
  - REFLUX OESOPHAGITIS [None]
